FAERS Safety Report 4710720-7 (Version None)
Quarter: 2005Q3

REPORT INFORMATION
  Report Type: 
  Country: None (occurrence: None)
  Receive Date: 20050711
  Receipt Date: 20050705
  Transmission Date: 20060218
  Serious: Yes (Hospitalization)
  Sender: FDA-Public Use
  Company Number: BE-BRISTOL-MYERS SQUIBB COMPANY-13023973

PATIENT
  Age: 73 Year
  Sex: Female

DRUGS (4)
  1. TAXOL [Suspect]
     Indication: ENDOMETRIAL CANCER
     Dates: start: 20050613, end: 20050613
  2. CISPLATIN [Suspect]
     Indication: ENDOMETRIAL CANCER
     Dates: start: 20050613, end: 20050613
  3. ADRIAMYCIN PFS [Suspect]
     Indication: ENDOMETRIAL CANCER
     Dates: start: 20050429
  4. PROZAC [Concomitant]

REACTIONS (2)
  - NEUTROPENIA [None]
  - VOMITING [None]
